FAERS Safety Report 8593744-1 (Version None)
Quarter: 2012Q3

REPORT INFORMATION
  Report Type: 
  Country: None (occurrence: None)
  Receive Date: 20120716
  Receipt Date: 20120716
  Transmission Date: 20120928
  Serious: Yes (Hospitalization)
  Sender: FDA-Public Use
  Company Number: None

PATIENT
  Age: 67 Year
  Sex: Female
  Weight: 41.7 kg

DRUGS (1)
  1. NICOTINE [Suspect]

REACTIONS (1)
  - NO ADVERSE EVENT [None]
